FAERS Safety Report 20642591 (Version 3)
Quarter: 2022Q4

REPORT INFORMATION
  Report Type: Spontaneous
  Country: CA (occurrence: CA)
  Receive Date: 20220328
  Receipt Date: 20221011
  Transmission Date: 20230112
  Serious: Yes (Hospitalization, Other)
  Sender: FDA-Public Use
  Company Number: CA-NOVARTISPH-NVSC2022CA066190

PATIENT
  Age: 56 Year
  Sex: Female

DRUGS (151)
  1. ERELZI [Suspect]
     Active Substance: ETANERCEPT-SZZS
     Indication: Rheumatoid arthritis
     Dosage: 25 MG
     Route: 058
  2. ERELZI [Suspect]
     Active Substance: ETANERCEPT-SZZS
     Dosage: 50 MG
     Route: 058
  3. ERELZI [Suspect]
     Active Substance: ETANERCEPT-SZZS
     Dosage: 25 MG, Q2W
     Route: 058
  4. ERELZI [Suspect]
     Active Substance: ETANERCEPT-SZZS
     Dosage: 25 MG, BIW
     Route: 058
  5. ERELZI [Suspect]
     Active Substance: ETANERCEPT-SZZS
     Dosage: 12.5 MG, QW
     Route: 058
  6. ERELZI [Suspect]
     Active Substance: ETANERCEPT-SZZS
     Dosage: 25 MG, QW
     Route: 065
  7. ERELZI [Suspect]
     Active Substance: ETANERCEPT-SZZS
     Dosage: UNK
     Route: 058
  8. ERELZI [Suspect]
     Active Substance: ETANERCEPT-SZZS
     Dosage: UNK
     Route: 058
  9. ERELZI [Suspect]
     Active Substance: ETANERCEPT-SZZS
     Dosage: UNK
     Route: 058
  10. ERELZI [Suspect]
     Active Substance: ETANERCEPT-SZZS
     Dosage: UNK
     Route: 058
  11. ERELZI [Suspect]
     Active Substance: ETANERCEPT-SZZS
     Dosage: UNK
     Route: 058
  12. ERELZI [Suspect]
     Active Substance: ETANERCEPT-SZZS
     Dosage: UNK
     Route: 058
  13. ADALIMUMAB [Suspect]
     Active Substance: ADALIMUMAB
     Indication: Rheumatoid arthritis
     Dosage: 40 MG, Q2W
     Route: 058
  14. ADALIMUMAB [Suspect]
     Active Substance: ADALIMUMAB
     Dosage: 40 MG
     Route: 058
  15. ADALIMUMAB [Suspect]
     Active Substance: ADALIMUMAB
     Dosage: 40 MG
     Route: 058
  16. ADALIMUMAB [Suspect]
     Active Substance: ADALIMUMAB
     Dosage: 40 MG
     Route: 058
  17. ALENDRONATE SODIUM [Suspect]
     Active Substance: ALENDRONATE SODIUM
     Indication: Rheumatoid arthritis
     Dosage: UNK
     Route: 065
  18. LEFLUNOMIDE [Suspect]
     Active Substance: LEFLUNOMIDE
     Indication: Rheumatoid arthritis
     Dosage: 1 DOSAGE FORM, QD
     Route: 065
  19. LEFLUNOMIDE [Suspect]
     Active Substance: LEFLUNOMIDE
     Dosage: 20 MG, QD
     Route: 048
  20. LEFLUNOMIDE [Suspect]
     Active Substance: LEFLUNOMIDE
     Dosage: 20 MG, QH
     Route: 048
  21. LEFLUNOMIDE [Suspect]
     Active Substance: LEFLUNOMIDE
     Dosage: UNK
     Route: 065
  22. LEFLUNOMIDE [Suspect]
     Active Substance: LEFLUNOMIDE
     Dosage: 20 MG, QD
     Route: 048
  23. LEFLUNOMIDE [Suspect]
     Active Substance: LEFLUNOMIDE
     Dosage: 20 MG
     Route: 048
  24. METHOTREXATE [Suspect]
     Active Substance: METHOTREXATE
     Indication: Rheumatoid arthritis
     Dosage: 15 MG, QW
     Route: 058
  25. METHOTREXATE [Suspect]
     Active Substance: METHOTREXATE
     Dosage: 17.5 MG
     Route: 058
  26. METHOTREXATE [Suspect]
     Active Substance: METHOTREXATE
     Dosage: 20 MG
     Route: 058
  27. METHOTREXATE [Suspect]
     Active Substance: METHOTREXATE
     Dosage: 15 MG, Q2W
     Route: 058
  28. METHOTREXATE [Suspect]
     Active Substance: METHOTREXATE
     Dosage: 17.5 MG
     Route: 065
  29. METHOTREXATE [Suspect]
     Active Substance: METHOTREXATE
     Dosage: 15 MG
     Route: 058
  30. METHOTREXATE [Suspect]
     Active Substance: METHOTREXATE
     Dosage: 17.5 MG
     Route: 065
  31. METHOTREXATE [Suspect]
     Active Substance: METHOTREXATE
     Dosage: UNK
     Route: 058
  32. METHOTREXATE [Suspect]
     Active Substance: METHOTREXATE
     Dosage: UNK
     Route: 048
  33. METHOTREXATE [Suspect]
     Active Substance: METHOTREXATE
     Dosage: UNK
     Route: 058
  34. METHOTREXATE [Suspect]
     Active Substance: METHOTREXATE
     Dosage: UNK
     Route: 048
  35. METHOTREXATE [Suspect]
     Active Substance: METHOTREXATE
     Dosage: 20 MG, QW
     Route: 058
  36. FOLIC ACID [Suspect]
     Active Substance: FOLIC ACID
     Indication: Rheumatoid arthritis
     Dosage: 500 MG
     Route: 065
  37. TRIAMCINOLONE ACETONIDE [Suspect]
     Active Substance: TRIAMCINOLONE ACETONIDE
     Indication: Product used for unknown indication
     Dosage: UNK
     Route: 014
  38. TRIAMCINOLONE ACETONIDE [Suspect]
     Active Substance: TRIAMCINOLONE ACETONIDE
     Dosage: UNK
     Route: 014
  39. RISEDRONATE SODIUM [Suspect]
     Active Substance: RISEDRONATE SODIUM
     Indication: Product used for unknown indication
     Dosage: 35 MG, QW
     Route: 048
  40. RISEDRONATE SODIUM [Suspect]
     Active Substance: RISEDRONATE SODIUM
     Dosage: 35 MG, QW
     Route: 065
  41. RISEDRONATE SODIUM [Suspect]
     Active Substance: RISEDRONATE SODIUM
     Dosage: UNK
     Route: 065
  42. RISEDRONATE SODIUM [Suspect]
     Active Substance: RISEDRONATE SODIUM
     Dosage: 35 MG, QW
     Route: 065
  43. RISEDRONATE SODIUM [Suspect]
     Active Substance: RISEDRONATE SODIUM
     Dosage: 35 MG, QW
     Route: 065
  44. RISEDRONATE SODIUM [Suspect]
     Active Substance: RISEDRONATE SODIUM
     Dosage: 35 MG, QW
     Route: 065
  45. RITUXIMAB [Suspect]
     Active Substance: RITUXIMAB
     Indication: Rheumatoid arthritis
     Dosage: 1 G, QD
     Route: 042
  46. RITUXIMAB [Suspect]
     Active Substance: RITUXIMAB
     Dosage: 1 G
     Route: 065
  47. RITUXIMAB [Suspect]
     Active Substance: RITUXIMAB
     Dosage: UNK
     Route: 058
  48. RITUXIMAB [Suspect]
     Active Substance: RITUXIMAB
     Dosage: 1000 MG
     Route: 042
  49. RITUXIMAB [Suspect]
     Active Substance: RITUXIMAB
     Dosage: 1 G
     Route: 042
  50. RITUXIMAB [Suspect]
     Active Substance: RITUXIMAB
     Dosage: 1 G
     Route: 065
  51. RITUXIMAB [Suspect]
     Active Substance: RITUXIMAB
     Dosage: 1 MG
     Route: 042
  52. RITUXIMAB [Suspect]
     Active Substance: RITUXIMAB
     Dosage: 1 G
     Route: 042
  53. RITUXIMAB [Suspect]
     Active Substance: RITUXIMAB
     Dosage: UNK
     Route: 042
  54. RITUXIMAB [Suspect]
     Active Substance: RITUXIMAB
     Dosage: UNK
     Route: 065
  55. RITUXIMAB [Suspect]
     Active Substance: RITUXIMAB
     Dosage: UNK
     Route: 042
  56. RITUXIMAB [Suspect]
     Active Substance: RITUXIMAB
     Dosage: 1 G
     Route: 042
  57. INFLIXIMAB [Suspect]
     Active Substance: INFLIXIMAB
     Indication: Product used for unknown indication
     Dosage: 3 MG/KG
     Route: 042
  58. INFLIXIMAB [Suspect]
     Active Substance: INFLIXIMAB
     Dosage: 5 MG/KG
     Route: 042
  59. CELECOXIB [Suspect]
     Active Substance: CELECOXIB
     Indication: Rheumatoid arthritis
     Dosage: 200 MG
     Route: 048
  60. CELECOXIB [Suspect]
     Active Substance: CELECOXIB
     Dosage: 200 MG
     Route: 048
  61. ACTEMRA [Suspect]
     Active Substance: TOCILIZUMAB
     Indication: Rheumatoid arthritis
     Dosage: 200 MG, QW
     Route: 042
  62. ACTEMRA [Suspect]
     Active Substance: TOCILIZUMAB
     Dosage: 280 MG, Q2W
     Route: 042
  63. ACTEMRA [Suspect]
     Active Substance: TOCILIZUMAB
     Dosage: 200 MG, Q2W
     Route: 042
  64. ACTEMRA [Suspect]
     Active Substance: TOCILIZUMAB
     Dosage: 8 MG/KG
     Route: 065
  65. ACTEMRA [Suspect]
     Active Substance: TOCILIZUMAB
     Dosage: 280 MG
     Route: 042
  66. ACTEMRA [Suspect]
     Active Substance: TOCILIZUMAB
     Dosage: UNK
     Route: 058
  67. ACTEMRA [Suspect]
     Active Substance: TOCILIZUMAB
     Dosage: UNK
     Route: 065
  68. ANAKINRA [Suspect]
     Active Substance: ANAKINRA
     Indication: Rheumatoid arthritis
     Dosage: 50 MG, QD
     Route: 058
  69. ANAKINRA [Suspect]
     Active Substance: ANAKINRA
     Dosage: 100 MG
     Route: 058
  70. ANAKINRA [Suspect]
     Active Substance: ANAKINRA
     Dosage: UNK
     Route: 048
  71. ANAKINRA [Suspect]
     Active Substance: ANAKINRA
     Dosage: UNK
     Route: 058
  72. ANAKINRA [Suspect]
     Active Substance: ANAKINRA
     Dosage: UNK
     Route: 058
  73. LEFLUNOMIDE [Suspect]
     Active Substance: LEFLUNOMIDE
     Indication: Rheumatoid arthritis
     Dosage: 20 MG
     Route: 048
  74. LEFLUNOMIDE [Suspect]
     Active Substance: LEFLUNOMIDE
     Dosage: 20 MG, QD
     Route: 048
  75. LEFLUNOMIDE [Suspect]
     Active Substance: LEFLUNOMIDE
     Dosage: 20 MG, QH
     Route: 048
  76. LEFLUNOMIDE [Suspect]
     Active Substance: LEFLUNOMIDE
     Dosage: 20 MG
     Route: 065
  77. HYDROXYCHLOROQUINE [Suspect]
     Active Substance: HYDROXYCHLOROQUINE
     Indication: Rheumatoid arthritis
     Dosage: 1 DOSAGE FORM, QD
     Route: 065
  78. HYDROXYCHLOROQUINE [Suspect]
     Active Substance: HYDROXYCHLOROQUINE
     Dosage: UNK
     Route: 065
  79. HYDROXYCHLOROQUINE [Suspect]
     Active Substance: HYDROXYCHLOROQUINE
     Dosage: 5 MG, QD
     Route: 048
  80. HYDROXYCHLOROQUINE [Suspect]
     Active Substance: HYDROXYCHLOROQUINE
     Dosage: 20 MG
     Route: 048
  81. HYDROXYCHLOROQUINE [Suspect]
     Active Substance: HYDROXYCHLOROQUINE
     Dosage: UNK
     Route: 065
  82. HYDROXYCHLOROQUINE [Suspect]
     Active Substance: HYDROXYCHLOROQUINE
     Dosage: 300 MG
     Route: 065
  83. TRIAMCINOLONE [Suspect]
     Active Substance: TRIAMCINOLONE
     Indication: Product used for unknown indication
     Dosage: UNK
     Route: 065
  84. NAPROXEN [Suspect]
     Active Substance: NAPROXEN
     Indication: Product used for unknown indication
     Dosage: UNK
     Route: 065
  85. ARAVA [Suspect]
     Active Substance: LEFLUNOMIDE
     Indication: Rheumatoid arthritis
     Dosage: 20 MG, QD
     Route: 048
  86. ARAVA [Suspect]
     Active Substance: LEFLUNOMIDE
     Dosage: UNK
     Route: 065
  87. ARAVA [Suspect]
     Active Substance: LEFLUNOMIDE
     Dosage: UNK
     Route: 048
  88. CETIRIZINE HYDROCHLORIDE [Suspect]
     Active Substance: CETIRIZINE HYDROCHLORIDE
     Indication: Rheumatoid arthritis
     Dosage: UNK
     Route: 065
  89. CIMZIA [Suspect]
     Active Substance: CERTOLIZUMAB PEGOL
     Indication: Rheumatoid arthritis
     Dosage: UNK
     Route: 058
  90. CIMZIA [Suspect]
     Active Substance: CERTOLIZUMAB PEGOL
     Indication: Psoriasis
     Dosage: UNK
     Route: 058
  91. CIMZIA [Suspect]
     Active Substance: CERTOLIZUMAB PEGOL
     Dosage: UNK
     Route: 058
  92. CORTISONE ACETATE [Suspect]
     Active Substance: CORTISONE ACETATE
     Indication: Product used for unknown indication
     Dosage: UNK
     Route: 061
  93. DESOXIMETASONE [Suspect]
     Active Substance: DESOXIMETASONE
     Indication: Rheumatoid arthritis
     Dosage: UNK
     Route: 048
  94. GOLD [Suspect]
     Active Substance: GOLD
     Indication: Product used for unknown indication
     Dosage: UNK
     Route: 065
  95. HYDROXYCHLOROQUINE SULFATE [Suspect]
     Active Substance: HYDROXYCHLOROQUINE SULFATE
     Indication: Rheumatoid arthritis
     Dosage: 300 MG, QD
     Route: 048
  96. HYDROXYCHLOROQUINE SULFATE [Suspect]
     Active Substance: HYDROXYCHLOROQUINE SULFATE
     Dosage: 1 DOSAGE FORM, QD
     Route: 065
  97. HYDROXYCHLOROQUINE SULFATE [Suspect]
     Active Substance: HYDROXYCHLOROQUINE SULFATE
     Dosage: 20 MG
     Route: 048
  98. HYDROXYCHLOROQUINE SULFATE [Suspect]
     Active Substance: HYDROXYCHLOROQUINE SULFATE
     Dosage: 300 MG, QH
     Route: 048
  99. HYDROXYCHLOROQUINE SULFATE [Suspect]
     Active Substance: HYDROXYCHLOROQUINE SULFATE
     Dosage: 20 MG, BID
     Route: 065
  100. HYDROXYCHLOROQUINE SULFATE [Suspect]
     Active Substance: HYDROXYCHLOROQUINE SULFATE
     Dosage: 200 MG, BID
     Route: 048
  101. HYDROXYCHLOROQUINE SULFATE [Suspect]
     Active Substance: HYDROXYCHLOROQUINE SULFATE
     Dosage: 5 MG, QD
     Route: 048
  102. HYDROXYCHLOROQUINE SULFATE [Suspect]
     Active Substance: HYDROXYCHLOROQUINE SULFATE
     Dosage: 300 MG, QD
     Route: 065
  103. HYDROXYCHLOROQUINE SULFATE [Suspect]
     Active Substance: HYDROXYCHLOROQUINE SULFATE
     Dosage: 300 MG
     Route: 065
  104. HYDROXYCHLOROQUINE SULFATE [Suspect]
     Active Substance: HYDROXYCHLOROQUINE SULFATE
     Dosage: 300 MG
     Route: 065
  105. HYDROXYCHLOROQUINE SULFATE [Suspect]
     Active Substance: HYDROXYCHLOROQUINE SULFATE
     Dosage: 400 MG
     Route: 065
  106. HYDROXYCHLOROQUINE SULFATE [Suspect]
     Active Substance: HYDROXYCHLOROQUINE SULFATE
     Dosage: 400 MG, QD
     Route: 065
  107. HYDROXYCHLOROQUINE SULFATE [Suspect]
     Active Substance: HYDROXYCHLOROQUINE SULFATE
     Dosage: 400 MG, QD
     Route: 048
  108. HYDROXYCHLOROQUINE SULFATE [Suspect]
     Active Substance: HYDROXYCHLOROQUINE SULFATE
     Dosage: 400 MG
     Route: 048
  109. NAPROXEN [Suspect]
     Active Substance: NAPROXEN
     Indication: Rheumatoid arthritis
     Dosage: 50 MG
     Route: 065
  110. NAPROXEN [Suspect]
     Active Substance: NAPROXEN
     Dosage: 500 MG
     Route: 065
  111. NAPROXEN [Suspect]
     Active Substance: NAPROXEN
     Dosage: 50 MG
     Route: 065
  112. NAPROXEN [Suspect]
     Active Substance: NAPROXEN
     Dosage: 500 MG
     Route: 065
  113. ORENCIA [Suspect]
     Active Substance: ABATACEPT
     Indication: Rheumatoid arthritis
     Dosage: 250 MG, QMO
     Route: 042
  114. ORENCIA [Suspect]
     Active Substance: ABATACEPT
     Dosage: 750 MG
     Route: 042
  115. ORENCIA [Suspect]
     Active Substance: ABATACEPT
     Dosage: UNK
     Route: 065
  116. ORENCIA [Suspect]
     Active Substance: ABATACEPT
     Dosage: 250 MG, QMO
     Route: 042
  117. ORENCIA [Suspect]
     Active Substance: ABATACEPT
     Dosage: 150 MG
     Route: 058
  118. ORENCIA [Suspect]
     Active Substance: ABATACEPT
     Dosage: 150 MG, QW
     Route: 058
  119. PHTHALYLSULFATHIAZOLE [Suspect]
     Active Substance: PHTHALYLSULFATHIAZOLE
     Indication: Rheumatoid arthritis
     Dosage: UNK
     Route: 065
  120. PHTHALYLSULFATHIAZOLE [Suspect]
     Active Substance: PHTHALYLSULFATHIAZOLE
     Dosage: UNK
     Route: 065
  121. PREDNISONE [Suspect]
     Active Substance: PREDNISONE
     Indication: Rheumatoid arthritis
     Dosage: 3 MG, BID
     Route: 048
  122. PREDNISONE [Suspect]
     Active Substance: PREDNISONE
     Dosage: 1.3 MG
     Route: 048
  123. PREDNISONE [Suspect]
     Active Substance: PREDNISONE
     Dosage: 5 MG, BID
     Route: 048
  124. PREDNISONE [Suspect]
     Active Substance: PREDNISONE
     Dosage: 3 MG, BID
     Route: 048
  125. PREDNISONE [Suspect]
     Active Substance: PREDNISONE
     Dosage: 5 MG, BID
     Route: 048
  126. PREDNISONE [Suspect]
     Active Substance: PREDNISONE
     Dosage: UNK
     Route: 065
  127. PREDNISONE [Suspect]
     Active Substance: PREDNISONE
     Dosage: UNK
     Route: 065
  128. PREDNISONE [Suspect]
     Active Substance: PREDNISONE
     Dosage: UNK
     Route: 065
  129. REMICADE [Suspect]
     Active Substance: INFLIXIMAB
     Indication: Rheumatoid arthritis
     Dosage: 35 MG
     Route: 042
  130. REMICADE [Suspect]
     Active Substance: INFLIXIMAB
     Dosage: 5 MG/KG
     Route: 042
  131. REMICADE [Suspect]
     Active Substance: INFLIXIMAB
     Dosage: 30 MG
     Route: 042
  132. REMICADE [Suspect]
     Active Substance: INFLIXIMAB
     Dosage: UNK
     Route: 042
  133. REMICADE [Suspect]
     Active Substance: INFLIXIMAB
     Dosage: UNK
     Route: 042
  134. RISEDRONIC ACID [Suspect]
     Active Substance: RISEDRONIC ACID
     Indication: Product used for unknown indication
     Dosage: UNK
     Route: 065
  135. SIMPONI [Suspect]
     Active Substance: GOLIMUMAB
     Indication: Rheumatoid arthritis
     Dosage: 50 MG, QMO
     Route: 058
  136. SIMPONI [Suspect]
     Active Substance: GOLIMUMAB
     Dosage: 50 MG, QW
     Route: 058
  137. SULFASALAZINE [Suspect]
     Active Substance: SULFASALAZINE
     Indication: Rheumatoid arthritis
     Dosage: 500 MG
     Route: 065
  138. SULFASALAZINE [Suspect]
     Active Substance: SULFASALAZINE
     Dosage: 250 MG, QD
     Route: 048
  139. SULFASALAZINE [Suspect]
     Active Substance: SULFASALAZINE
     Dosage: 500 MG
     Route: 065
  140. TOCILIZUMAB [Suspect]
     Active Substance: TOCILIZUMAB
     Indication: Rheumatoid arthritis
     Dosage: UNK
     Route: 065
  141. TOCILIZUMAB [Suspect]
     Active Substance: TOCILIZUMAB
     Dosage: UNK
     Route: 065
  142. XELJANZ [Suspect]
     Active Substance: TOFACITINIB CITRATE
     Indication: Rheumatoid arthritis
     Dosage: 5 MG, BID
     Route: 048
  143. XELJANZ [Suspect]
     Active Substance: TOFACITINIB CITRATE
     Dosage: 5 MG, QD
     Route: 048
  144. ENBREL [Suspect]
     Active Substance: ETANERCEPT
     Indication: Rheumatoid arthritis
     Dosage: 50 MG, QW
     Route: 058
  145. ENBREL [Suspect]
     Active Substance: ETANERCEPT
     Dosage: 50 MG
     Route: 058
  146. GOLIMUMAB [Suspect]
     Active Substance: GOLIMUMAB
     Indication: Rheumatoid arthritis
     Dosage: 50 MG
     Route: 058
  147. GOLIMUMAB [Suspect]
     Active Substance: GOLIMUMAB
     Dosage: 50 MG, QW
     Route: 058
  148. GOLIMUMAB [Suspect]
     Active Substance: GOLIMUMAB
     Dosage: 50 MG
     Route: 058
  149. GOLIMUMAB [Suspect]
     Active Substance: GOLIMUMAB
     Dosage: 50 MG, QMO
     Route: 058
  150. WELLBUTRIN [Concomitant]
     Active Substance: BUPROPION HYDROCHLORIDE
     Indication: Product used for unknown indication
     Dosage: UNK
     Route: 065
  151. RISEDRONATE SODIUM [Concomitant]
     Active Substance: RISEDRONATE SODIUM
     Indication: Product used for unknown indication
     Dosage: 35 MG, QW
     Route: 065

REACTIONS (57)
  - Adrenal insufficiency [Not Recovered/Not Resolved]
  - Anti-cyclic citrullinated peptide antibody positive [Not Recovered/Not Resolved]
  - Arthritis [Not Recovered/Not Resolved]
  - Gastroenteritis viral [Not Recovered/Not Resolved]
  - Hypertension [Not Recovered/Not Resolved]
  - Hypocalcaemia [Not Recovered/Not Resolved]
  - Hypokalaemia [Not Recovered/Not Resolved]
  - Hypotension [Not Recovered/Not Resolved]
  - Ill-defined disorder [Not Recovered/Not Resolved]
  - Immunodeficiency [Not Recovered/Not Resolved]
  - Infection [Not Recovered/Not Resolved]
  - Joint destruction [Not Recovered/Not Resolved]
  - Foot deformity [Not Recovered/Not Resolved]
  - Limb discomfort [Not Recovered/Not Resolved]
  - Loss of consciousness [Not Recovered/Not Resolved]
  - Drug hypersensitivity [Not Recovered/Not Resolved]
  - Malaise [Not Recovered/Not Resolved]
  - Mobility decreased [Not Recovered/Not Resolved]
  - Nodule [Not Recovered/Not Resolved]
  - Obesity [Not Recovered/Not Resolved]
  - Pleural effusion [Not Recovered/Not Resolved]
  - Polyarthritis [Not Recovered/Not Resolved]
  - Psoriasis [Not Recovered/Not Resolved]
  - Pyrexia [Not Recovered/Not Resolved]
  - Red blood cell sedimentation rate abnormal [Not Recovered/Not Resolved]
  - Rheumatoid factor positive [Not Recovered/Not Resolved]
  - Pulmonary fibrosis [Not Recovered/Not Resolved]
  - Septic shock [Not Recovered/Not Resolved]
  - Product use issue [Not Recovered/Not Resolved]
  - Therapy non-responder [Not Recovered/Not Resolved]
  - Therapeutic product effect decreased [Not Recovered/Not Resolved]
  - Abdominal discomfort [Not Recovered/Not Resolved]
  - Alopecia [Not Recovered/Not Resolved]
  - Condition aggravated [Not Recovered/Not Resolved]
  - Arthropathy [Not Recovered/Not Resolved]
  - Diarrhoea [Not Recovered/Not Resolved]
  - Glossodynia [Not Recovered/Not Resolved]
  - Fibromyalgia [Not Recovered/Not Resolved]
  - Hand deformity [Not Recovered/Not Resolved]
  - Fatigue [Not Recovered/Not Resolved]
  - Nausea [Not Recovered/Not Resolved]
  - Dizziness [Not Recovered/Not Resolved]
  - Abdominal pain [Not Recovered/Not Resolved]
  - Pain [Not Recovered/Not Resolved]
  - Pemphigus [Not Recovered/Not Resolved]
  - Oedema [Not Recovered/Not Resolved]
  - Rheumatoid arthritis [Not Recovered/Not Resolved]
  - Vomiting [Not Recovered/Not Resolved]
  - Synovitis [Not Recovered/Not Resolved]
  - Swelling [Not Recovered/Not Resolved]
  - Systemic lupus erythematosus [Not Recovered/Not Resolved]
  - Drug intolerance [Not Recovered/Not Resolved]
  - Drug tolerance [Not Recovered/Not Resolved]
  - Intentional product use issue [Not Recovered/Not Resolved]
  - Contraindicated product administered [Not Recovered/Not Resolved]
  - Off label use [Not Recovered/Not Resolved]
  - Drug ineffective [Not Recovered/Not Resolved]
